FAERS Safety Report 5619733-4 (Version None)
Quarter: 2008Q1

REPORT INFORMATION
  Report Type: 
  Country: None (occurrence: None)
  Receive Date: 20080208
  Receipt Date: 20071120
  Transmission Date: 20080703
  Serious: No
  Sender: FDA-Public Use
  Company Number: A0695407A

PATIENT
  Age: 68 Year
  Sex: Female

DRUGS (1)
  1. ALTABAX [Suspect]
     Dosage: 15MG TWICE PER DAY
     Route: 061

REACTIONS (3)
  - BLISTER [None]
  - BURNING SENSATION [None]
  - SWELLING [None]
